FAERS Safety Report 5221186-5 (Version None)
Quarter: 2007Q1

REPORT INFORMATION
  Report Type: 
  Country: None (occurrence: None)
  Receive Date: 20070126
  Receipt Date: 20070123
  Transmission Date: 20070707
  Serious: Yes (Hospitalization)
  Sender: FDA-Public Use
  Company Number: DE-ROXANE LABORATORIES, INC-2007-DE-00406DE

PATIENT
  Sex: Male

DRUGS (6)
  1. BUSCOPAN [Suspect]
     Route: 048
  2. MUCOSOLVAN [Suspect]
     Route: 048
  3. ASPIRIN [Suspect]
     Route: 048
  4. BENURON [Suspect]
     Route: 048
  5. LOPERAMID [Suspect]
     Route: 048
  6. TALVOSILEN [Suspect]
     Route: 048

REACTIONS (2)
  - DRUG ABUSER [None]
  - SUICIDE ATTEMPT [None]
